FAERS Safety Report 5934848-9 (Version None)
Quarter: 2008Q4

REPORT INFORMATION
  Report Type: 
  Country: None (occurrence: None)
  Receive Date: 20081027
  Receipt Date: 20081016
  Transmission Date: 20090506
  Serious: Yes (Life-Threatening, Hospitalization)
  Sender: FDA-Public Use
  Company Number: 2008AL011381

PATIENT
  Age: 42 Year
  Sex: Female

DRUGS (3)
  1. GABAPENTIN [Suspect]
     Indication: PAIN
     Dosage: 100 MG; TID; PO
     Route: 048
     Dates: start: 20080904
  2. SOLPADOL [Concomitant]
  3. NAPROXEN [Concomitant]

REACTIONS (1)
  - ILL-DEFINED DISORDER [None]
